FAERS Safety Report 24127200 (Version 1)
Quarter: 2024Q3

REPORT INFORMATION
  Report Type: Report from Study
  Country: US (occurrence: US)
  Receive Date: 20240723
  Receipt Date: 20240723
  Transmission Date: 20241017
  Serious: No
  Sender: VANDA PHARMACEUTICALS
  Company Number: US-VANDA PHARMACEUTICALS, INC-2022TASUS006347

PATIENT
  Age: 5 Year
  Sex: Male
  Weight: 15.42 kg

DRUGS (1)
  1. HETLIOZ LQ [Suspect]
     Active Substance: TASIMELTEON
     Indication: Smith-Magenis syndrome
     Dosage: 2.5 MILLILITER, QD
     Route: 048
     Dates: end: 20221213

REACTIONS (4)
  - Irregular sleep phase [Unknown]
  - Product dose omission issue [Unknown]
  - Product storage error [Unknown]
  - Product dose omission in error [Unknown]

NARRATIVE: CASE EVENT DATE: 20221212
